FAERS Safety Report 23937183 (Version 4)
Quarter: 2025Q1

REPORT INFORMATION
  Report Type: Spontaneous
  Country: IL (occurrence: IL)
  Receive Date: 20240604
  Receipt Date: 20250311
  Transmission Date: 20250409
  Serious: Yes (Hospitalization, Other)
  Sender: TERSERA THERAPEUTICS
  Company Number: IL-TERSERA THERAPEUTICS LLC-2023TRS003770

PATIENT

DRUGS (5)
  1. XERMELO [Suspect]
     Active Substance: TELOTRISTAT ETHYL
     Indication: Carcinoid syndrome
     Route: 048
     Dates: start: 20230607
  2. XERMELO [Suspect]
     Active Substance: TELOTRISTAT ETHYL
     Dosage: 250 MG, Q8H (EACH 8 HR)
     Route: 048
  3. XERMELO [Suspect]
     Active Substance: TELOTRISTAT ETHYL
     Dosage: 250 MG, Q8H (EACH 8 HR)
     Route: 048
     Dates: start: 20230809, end: 20240726
  4. XERMELO [Suspect]
     Active Substance: TELOTRISTAT ETHYL
     Dosage: 500 MG, Q8H (EACH 8 HR)
     Route: 048
     Dates: start: 20240727
  5. XERMELO [Suspect]
     Active Substance: TELOTRISTAT ETHYL
     Dosage: 500 MG, Q8H (EACH 8 HR)
     Route: 048

REACTIONS (10)
  - Device related infection [Recovering/Resolving]
  - Intestinal obstruction [Recovering/Resolving]
  - Pancreatic carcinoma metastatic [Not Recovered/Not Resolved]
  - Malaise [Recovering/Resolving]
  - Diarrhoea [Not Recovered/Not Resolved]
  - Back pain [Recovering/Resolving]
  - Condition aggravated [Recovering/Resolving]
  - Pain [Not Recovered/Not Resolved]
  - Overdose [Unknown]
  - Product use issue [Unknown]

NARRATIVE: CASE EVENT DATE: 20230724
